FAERS Safety Report 13087816 (Version 1)
Quarter: 2017Q1

REPORT INFORMATION
  Report Type: Spontaneous
  Country: DE (occurrence: DE)
  Receive Date: 20170105
  Receipt Date: 20170105
  Transmission Date: 20170428
  Serious: Yes (Congenital Anomaly, Other)
  Sender: FDA-Public Use
  Company Number: DE-TEVA-723594GER

PATIENT
  Age: 1 Day
  Sex: Female

DRUGS (22)
  1. CIPROFLOXACIN. [Concomitant]
     Active Substance: CIPROFLOXACIN
     Indication: ANTIBIOTIC PROPHYLAXIS
     Dosage: 1000 MILLIGRAM DAILY;
     Route: 064
  2. COTRIM FORTE [Concomitant]
     Active Substance: SULFAMETHOXAZOLE\TRIMETHOPRIM
     Indication: ANTIFUNGAL PROPHYLAXIS
     Route: 064
  3. DAUNORUBICIN [Suspect]
     Active Substance: DAUNORUBICIN
     Indication: ACUTE PROMYELOCYTIC LEUKAEMIA
     Dosage: 120 MILLIGRAM DAILY;
     Route: 064
     Dates: start: 20160308, end: 20160530
  4. CYTARABINE. [Suspect]
     Active Substance: CYTARABINE
     Indication: ACUTE PROMYELOCYTIC LEUKAEMIA
     Dosage: 400 MILLIGRAM DAILY;
     Route: 064
     Dates: start: 20160308, end: 20160314
  5. VESANOID [Suspect]
     Active Substance: TRETINOIN
     Indication: ACUTE PROMYELOCYTIC LEUKAEMIA
     Dosage: 90 MILLIGRAM DAILY;
     Route: 064
     Dates: start: 20160308, end: 20160530
  6. PROGYNOVA 21 [Concomitant]
     Indication: PROPHYLAXIS OF ABORTION
     Dosage: 2 MILLIGRAM DAILY;
     Route: 064
     Dates: start: 20151115, end: 20160317
  7. L-THYROXIN [Concomitant]
     Active Substance: LEVOTHYROXINE SODIUM
     Indication: HYPOTHYROIDISM
     Dosage: 75 MICROGRAM DAILY;
     Route: 064
     Dates: start: 20151115, end: 20160317
  8. MAGNESIUM VERLA [Concomitant]
     Active Substance: MAGNESIUM
     Indication: PROPHYLAXIS OF ABORTION
     Route: 064
     Dates: start: 20160317, end: 20160317
  9. DIFLUCAN [Suspect]
     Active Substance: FLUCONAZOLE
     Indication: ANTIFUNGAL PROPHYLAXIS
     Dosage: 400 MILLIGRAM DAILY;
     Route: 064
  10. ROCEPHIN 2 G [Concomitant]
     Indication: ANTIBIOTIC PROPHYLAXIS
     Dosage: 2000 MILLIGRAM DAILY;
     Route: 064
     Dates: start: 20160308, end: 20160317
  11. AMPHO-MORONAL SUSPENSION [Concomitant]
     Indication: ANTIFUNGAL PROPHYLAXIS
     Route: 064
     Dates: start: 20160308, end: 20160317
  12. VOMEX A [Concomitant]
     Active Substance: DIMENHYDRINATE
     Indication: PROPHYLAXIS OF NAUSEA AND VOMITING
     Dosage: PERHAPS LONGER THERAPY
     Route: 064
     Dates: start: 20160308, end: 20160317
  13. CLEXANE [Concomitant]
     Active Substance: ENOXAPARIN SODIUM
     Indication: THROMBOSIS PROPHYLAXIS
     Dosage: TERMINATED BEFORE WEEK 17 4/7
     Route: 064
  14. BETAMETHASONE. [Concomitant]
     Active Substance: BETAMETHASONE
     Indication: MATERNAL THERAPY TO ENHANCE FOETAL LUNG MATURITY
     Route: 064
  15. NATRIUMHYDROGENCARBONAT [Concomitant]
     Active Substance: SODIUM BICARBONATE
     Indication: URINE ALKALINISATION THERAPY
     Route: 064
     Dates: start: 20160308, end: 20160317
  16. ALLOPURINOL. [Suspect]
     Active Substance: ALLOPURINOL
     Indication: ACUTE PROMYELOCYTIC LEUKAEMIA
     Dosage: 300 MILLIGRAM DAILY;
     Route: 064
     Dates: start: 20160317, end: 20160317
  17. NOXAFIL [Suspect]
     Active Substance: POSACONAZOLE
     Indication: ANTIFUNGAL PROPHYLAXIS
     Dosage: 600 MILLIGRAM DAILY;
     Route: 064
  18. ACICLOVIR [Concomitant]
     Active Substance: ACYCLOVIR
     Indication: ANTIVIRAL PROPHYLAXIS
     Dosage: 800 MILLIGRAM DAILY;
     Route: 064
     Dates: start: 20160308, end: 20160317
  19. PANTOZOL [Concomitant]
     Active Substance: PANTOPRAZOLE SODIUM
     Indication: GASTRITIS PROPHYLAXIS
     Dosage: 40 MILLIGRAM DAILY;
     Route: 064
     Dates: start: 20160308, end: 20160317
  20. PROGESTAN [Concomitant]
     Active Substance: PROGESTERONE
     Indication: PROPHYLAXIS OF ABORTION
     Dosage: 200 MILLIGRAM DAILY;
     Route: 064
     Dates: start: 20151115, end: 20160317
  21. MCP [Concomitant]
     Active Substance: METOCLOPRAMIDE HYDROCHLORIDE
     Indication: PROPHYLAXIS OF NAUSEA AND VOMITING
     Dosage: ON DEMAND
     Route: 064
  22. ZOFRAN I.V. [Concomitant]
     Indication: PROPHYLAXIS OF NAUSEA AND VOMITING
     Dosage: 24 MILLIGRAM DAILY;
     Route: 064

REACTIONS (6)
  - Thrombocytosis [Recovered/Resolved]
  - Premature baby [Recovering/Resolving]
  - Small for dates baby [Not Recovered/Not Resolved]
  - Patent ductus arteriosus [Recovered/Resolved]
  - Bone disorder [Not Recovered/Not Resolved]
  - Foetal exposure during pregnancy [Unknown]

NARRATIVE: CASE EVENT DATE: 20160630
